FAERS Safety Report 9771193 (Version 2)
Quarter: 2013Q4

REPORT INFORMATION
  Report Type: Spontaneous
  Country: BR (occurrence: BR)
  Receive Date: 20131218
  Receipt Date: 20131218
  Transmission Date: 20140711
  Serious: Yes (Other)
  Sender: FDA-Public Use
  Company Number: BR-ELI_LILLY_AND_COMPANY-BR201308009808

PATIENT
  Sex: Female

DRUGS (4)
  1. HUMULIN N [Suspect]
     Indication: BLOOD GLUCOSE INCREASED
     Dosage: 20 DF, EACH MORNING
     Route: 065
  2. HUMULIN N [Suspect]
     Dosage: 20 DF, QD
     Route: 065
  3. HUMULIN N [Suspect]
     Dosage: 30 DF, EACH EVENING
     Route: 065
  4. HUMULIN R [Suspect]
     Indication: BLOOD GLUCOSE INCREASED
     Dosage: UNK, UNKNOWN
     Route: 065

REACTIONS (4)
  - Hypertension [Not Recovered/Not Resolved]
  - Injection site bruising [Recovered/Resolved]
  - Overweight [Not Recovered/Not Resolved]
  - Spinal disorder [Not Recovered/Not Resolved]
